FAERS Safety Report 12440612 (Version 2)
Quarter: 2016Q2

REPORT INFORMATION
  Report Type: Spontaneous
  Country: JP (occurrence: JP)
  Receive Date: 20160606
  Receipt Date: 20160629
  Transmission Date: 20160815
  Serious: Yes (Other)
  Sender: FDA-Public Use
  Company Number: JP-BAUSCH-BL-2016-012619

PATIENT
  Age: 79 Year
  Sex: Male

DRUGS (7)
  1. LUCENTIS [Suspect]
     Active Substance: RANIBIZUMAB
     Route: 047
     Dates: start: 201004
  2. VISUDYNE [Suspect]
     Active Substance: VERTEPORFIN
     Indication: AGE-RELATED MACULAR DEGENERATION
     Route: 042
  3. LUCENTIS [Suspect]
     Active Substance: RANIBIZUMAB
     Indication: AGE-RELATED MACULAR DEGENERATION
     Route: 047
     Dates: start: 2008
  4. VISUDYNE [Suspect]
     Active Substance: VERTEPORFIN
     Route: 042
     Dates: start: 201004
  5. LUCENTIS [Suspect]
     Active Substance: RANIBIZUMAB
     Route: 047
     Dates: start: 201508
  6. LUCENTIS [Suspect]
     Active Substance: RANIBIZUMAB
     Route: 047
     Dates: start: 201007
  7. LUCENTIS [Suspect]
     Active Substance: RANIBIZUMAB
     Route: 047
     Dates: start: 201006

REACTIONS (5)
  - Retinal scar [Unknown]
  - Retinal haemorrhage [Unknown]
  - Macular hole [Recovering/Resolving]
  - Vitreous haemorrhage [Unknown]
  - Macular oedema [Unknown]

NARRATIVE: CASE EVENT DATE: 2008
